FAERS Safety Report 8001507-0 (Version None)
Quarter: 2011Q4

REPORT INFORMATION
  Report Type: 
  Country: None (occurrence: None)
  Receive Date: 20111222
  Receipt Date: 20111220
  Transmission Date: 20120403
  Serious: Yes (Other)
  Sender: FDA-Public Use
  Company Number: US-JNJFOC-20111209066

PATIENT
  Sex: Female
  Weight: 85.73 kg

DRUGS (1)
  1. STELARA [Suspect]
     Indication: PSORIASIS
     Route: 058
     Dates: start: 20101101, end: 20101201

REACTIONS (2)
  - WEIGHT INCREASED [None]
  - ALOPECIA [None]
